FAERS Safety Report 24428177 (Version 4)
Quarter: 2025Q3

REPORT INFORMATION
  Report Type: Spontaneous
  Country: JP (occurrence: JP)
  Receive Date: 20241011
  Receipt Date: 20250815
  Transmission Date: 20251021
  Serious: Yes (Life-Threatening, Hospitalization, Other)
  Sender: ALEXION PHARMACEUTICALS
  Company Number: JP-ASTRAZENECA-240105661_063010_P_1

PATIENT
  Age: 76 Year
  Sex: Female

DRUGS (7)
  1. DAPAGLIFLOZIN [Suspect]
     Active Substance: DAPAGLIFLOZIN
  2. DAPAGLIFLOZIN [Suspect]
     Active Substance: DAPAGLIFLOZIN
  3. NEXIUM [Suspect]
     Active Substance: ESOMEPRAZOLE MAGNESIUM
  4. NEXIUM [Suspect]
     Active Substance: ESOMEPRAZOLE MAGNESIUM
  5. NEXIUM [Suspect]
     Active Substance: ESOMEPRAZOLE MAGNESIUM
  6. AZOSEMIDE [Suspect]
     Active Substance: AZOSEMIDE
  7. EPLERENONE [Suspect]
     Active Substance: EPLERENONE

REACTIONS (10)
  - Overdose [Unknown]
  - Acute kidney injury [Recovering/Resolving]
  - Palpitations [Unknown]
  - Nausea [Unknown]
  - Blood pressure decreased [Unknown]
  - Polyuria [Unknown]
  - Renal tubular disorder [Unknown]
  - Dehydration [Unknown]
  - Suicide attempt [Unknown]
  - Intentional product misuse [Unknown]
